FAERS Safety Report 10028625 (Version 1)
Quarter: 2014Q1

REPORT INFORMATION
  Report Type: Spontaneous
  Country: US (occurrence: US)
  Receive Date: 20140321
  Receipt Date: 20140321
  Transmission Date: 20141002
  Serious: Yes (Death)
  Sender: FDA-Public Use
  Company Number: US-GLAXOSMITHKLINE-A1065976A

PATIENT
  Age: 68 Year
  Sex: Female

DRUGS (15)
  1. VOTRIENT [Suspect]
     Indication: RENAL CANCER
     Dosage: 800MG PER DAY
     Route: 048
     Dates: start: 20130920
  2. DRONABINOL [Concomitant]
  3. PROCHLORPERAZINE [Concomitant]
  4. ZOLPIDEM [Concomitant]
  5. SYMBICORT [Concomitant]
  6. PREDNISONE [Concomitant]
  7. ALPRAZOLAM [Concomitant]
  8. NEXIUM [Concomitant]
  9. NORVASC [Concomitant]
  10. FUROSEMIDE [Concomitant]
  11. ATENOLOL [Concomitant]
  12. COUMADIN [Concomitant]
  13. LIPITOR [Concomitant]
  14. CLOTRIMAZOLE [Concomitant]
  15. BYSTOLIC [Concomitant]

REACTIONS (1)
  - Death [Fatal]
